FAERS Safety Report 7954750-0 (Version None)
Quarter: 2011Q4

REPORT INFORMATION
  Report Type: 
  Country: None (occurrence: None)
  Receive Date: 20111202
  Receipt Date: 20111130
  Transmission Date: 20120403
  Serious: Yes (Hospitalization)
  Sender: FDA-Public Use
  Company Number: US-ROCHE-1018096

PATIENT

DRUGS (1)
  1. NUTROPIN AQ [Suspect]
     Indication: PRADER-WILLI SYNDROME
     Route: 058

REACTIONS (1)
  - PNEUMONIA [None]
